FAERS Safety Report 5644130-5 (Version None)
Quarter: 2008Q1

REPORT INFORMATION
  Report Type: 
  Country: None (occurrence: None)
  Receive Date: 20080227
  Receipt Date: 20080108
  Transmission Date: 20080703
  Serious: Yes (Other)
  Sender: FDA-Public Use
  Company Number: 2008000769

PATIENT
  Age: 63 Year
  Sex: Female

DRUGS (3)
  1. BENADRYL (DIPHENHYRAMINE) [Suspect]
     Indication: RASH
     Dates: start: 20061007
  2. PROVIGIL [Suspect]
     Indication: ATTENTION DEFICIT/HYPERACTIVITY DISORDER
     Dosage: 200-400 MG QD,ORAL
     Route: 048
     Dates: start: 20060301
  3. LAMICTAL [Suspect]
     Dates: start: 20060101, end: 20061001

REACTIONS (3)
  - DRUG INEFFECTIVE [None]
  - HALLUCINATION, VISUAL [None]
  - RASH [None]
